FAERS Safety Report 16194632 (Version 1)
Quarter: 2019Q2

REPORT INFORMATION
  Report Type: Spontaneous
  Country: US (occurrence: US)
  Receive Date: 20190414
  Receipt Date: 20190414
  Transmission Date: 20190711
  Serious: No
  Sender: FDA-Public Use
  Company Number: US-009507513-1904USA003864

PATIENT
  Age: 18 Year
  Sex: Female
  Weight: 47.62 kg

DRUGS (2)
  1. ZOLOFT [Concomitant]
     Active Substance: SERTRALINE HYDROCHLORIDE
  2. NEXPLANON [Suspect]
     Active Substance: ETONOGESTREL
     Indication: CONTRACEPTION
     Dosage: 1 IMPLANT,  3 YEARS, LEFT ARM
     Route: 059
     Dates: start: 201805

REACTIONS (4)
  - Menorrhagia [Unknown]
  - Dysmenorrhoea [Unknown]
  - Vaginal discharge [Unknown]
  - Vaginal haemorrhage [Unknown]

NARRATIVE: CASE EVENT DATE: 2018
